FAERS Safety Report 14881718 (Version 2)
Quarter: 2018Q4

REPORT INFORMATION
  Report Type: Spontaneous
  Country: FR (occurrence: FR)
  Receive Date: 20180511
  Receipt Date: 20181031
  Transmission Date: 20190204
  Serious: Yes (Other)
  Sender: FDA-Public Use
  Company Number: FR-MERCK KGAA-2047622

PATIENT
  Sex: Female

DRUGS (1)
  1. EUTHYROX [Suspect]
     Active Substance: LEVOTHYROXINE SODIUM
     Indication: PRODUCT USED FOR UNKNOWN INDICATION
     Dates: end: 2017

REACTIONS (17)
  - Back pain [None]
  - Anxiety [None]
  - Aggression [None]
  - Social avoidant behaviour [None]
  - Headache [None]
  - Arrhythmia [None]
  - Fear [None]
  - Alopecia [None]
  - Myalgia [None]
  - Dizziness [None]
  - Weight increased [None]
  - Gastric disorder [None]
  - Decreased activity [None]
  - Fatigue [None]
  - Depression [None]
  - Anger [None]
  - Muscle spasms [None]
